FAERS Safety Report 4481271-2 (Version None)
Quarter: 2004Q4

REPORT INFORMATION
  Report Type: 
  Country: None (occurrence: None)
  Receive Date: 20040923
  Receipt Date: 20040608
  Transmission Date: 20050328
  Serious: No
  Sender: FDA-Public Use
  Company Number: USA030435685

PATIENT
  Age: 76 Year
  Sex: Female

DRUGS (5)
  1. FORTEO [Suspect]
     Indication: OSTEOPOROSIS
     Dosage: 20 UG/L DAY
     Dates: start: 20030301, end: 20040427
  2. CORAL CALCIUM DAILY [Concomitant]
  3. TOPROL-XL [Concomitant]
  4. LIPITOR [Concomitant]
  5. INDAPAMIDE [Concomitant]

REACTIONS (5)
  - INJECTION SITE HAEMORRHAGE [None]
  - RESPIRATORY DISORDER [None]
  - SENSATION OF BLOCK IN EAR [None]
  - SINUSITIS [None]
  - SKIN DISCOLOURATION [None]
